FAERS Safety Report 7534750-5 (Version None)
Quarter: 2011Q2

REPORT INFORMATION
  Report Type: 
  Country: None (occurrence: None)
  Receive Date: 20110609
  Receipt Date: 20080716
  Transmission Date: 20111010
  Serious: Yes (Other)
  Sender: FDA-Public Use
  Company Number: PHHY2008GB14886

PATIENT
  Sex: Male

DRUGS (2)
  1. VALPROATE SODIUM [Concomitant]
     Indication: CONVULSION
  2. CLOZAPINE [Suspect]
     Indication: SCHIZOPHRENIA
     Dosage: 650 MG, PER DAY
     Dates: start: 20050204

REACTIONS (4)
  - DEPRESSED LEVEL OF CONSCIOUSNESS [None]
  - CONSCIOUSNESS FLUCTUATING [None]
  - SOMNOLENCE [None]
  - PULSE ABNORMAL [None]
